FAERS Safety Report 14364424 (Version 1)
Quarter: 2018Q1

REPORT INFORMATION
  Report Type: Report from Study
  Country: AU (occurrence: AU)
  Receive Date: 20180108
  Receipt Date: 20180108
  Transmission Date: 20180509
  Serious: Yes (Other)
  Sender: FDA-Public Use
  Company Number: AU-PFIZER INC-2002064839

PATIENT
  Age: 31 Year
  Sex: Male
  Weight: 82.6 kg

DRUGS (11)
  1. OXYBUTYNIN. [Concomitant]
     Active Substance: OXYBUTYNIN CHLORIDE
     Indication: BLADDER DISORDER
     Route: 048
     Dates: start: 199901
  2. ASCORBIC ACID. [Concomitant]
     Active Substance: ASCORBIC ACID
     Indication: BLADDER DISORDER
     Route: 048
     Dates: start: 199811
  3. CITALOPRAM HYDROBROMIDE. [Concomitant]
     Active Substance: CITALOPRAM HYDROBROMIDE
     Indication: ABDOMINAL DISCOMFORT
     Route: 048
     Dates: start: 20010515
  4. PREGABALIN. [Suspect]
     Active Substance: PREGABALIN
     Dosage: 2X150MG/DAY
     Route: 048
     Dates: start: 20020820, end: 20021025
  5. BACLOFEN. [Concomitant]
     Active Substance: BACLOFEN
     Indication: MUSCLE SPASTICITY
     Route: 048
     Dates: start: 199811
  6. DOCUSATE SODIUM. [Concomitant]
     Active Substance: DOCUSATE SODIUM
     Indication: ABDOMINAL DISCOMFORT
     Route: 048
     Dates: start: 199811
  7. BISACODYL. [Concomitant]
     Active Substance: BISACODYL
     Indication: ABDOMINAL DISCOMFORT
     Route: 054
     Dates: start: 199811
  8. PREGABALIN. [Suspect]
     Active Substance: PREGABALIN
     Indication: SPINAL CORD INJURY
     Dosage: 150 MG, DAILY
     Route: 048
     Dates: start: 20020803, end: 20020809
  9. PREGABALIN. [Suspect]
     Active Substance: PREGABALIN
     Dosage: 2X 150MG/ DAY
     Route: 048
     Dates: start: 20020810, end: 20020816
  10. GINKGO BILOBA [Concomitant]
     Active Substance: GINKGO
     Indication: PERIPHERAL VASCULAR DISORDER
     Route: 048
     Dates: start: 200202
  11. PREGABALIN. [Suspect]
     Active Substance: PREGABALIN
     Dosage: 2X 300MG/ DAY
     Route: 048
     Dates: start: 20020818, end: 20020819

REACTIONS (2)
  - Withdrawal syndrome [Recovered/Resolved]
  - Muscle spasticity [Recovered/Resolved]

NARRATIVE: CASE EVENT DATE: 20021026
